FAERS Safety Report 4390287-6 (Version None)
Quarter: 2004Q2

REPORT INFORMATION
  Report Type: 
  Country: None (occurrence: None)
  Receive Date: 20040630
  Receipt Date: 20040614
  Transmission Date: 20050107
  Serious: Yes (Hospitalization)
  Sender: FDA-Public Use
  Company Number: 198482

PATIENT
  Age: 48 Year
  Sex: Female

DRUGS (1)
  1. AVONEX [Suspect]
     Indication: MULTIPLE SCLEROSIS
     Dosage: 30 MCG QW IM
     Route: 030
     Dates: start: 20040116

REACTIONS (15)
  - ARTHRALGIA [None]
  - CARDIAC ARREST [None]
  - CHILLS [None]
  - DIABETES MELLITUS [None]
  - DIAPHRAGMATIC DISORDER [None]
  - DYSPNOEA [None]
  - FALL [None]
  - FIBROMYALGIA [None]
  - GRAND MAL CONVULSION [None]
  - HYPERTENSION [None]
  - MULTIPLE SCLEROSIS [None]
  - PARALYSIS [None]
  - PYREXIA [None]
  - VAGINAL HAEMORRHAGE [None]
  - WEIGHT INCREASED [None]
